FAERS Safety Report 14797396 (Version 1)
Quarter: 2018Q2

REPORT INFORMATION
  Report Type: Spontaneous
  Country: US (occurrence: US)
  Receive Date: 20180424
  Receipt Date: 20180424
  Transmission Date: 20180711
  Serious: No
  Sender: FDA-Public Use
  Company Number: US-TEVA-815400ACC

PATIENT

DRUGS (1)
  1. TEVA FAMOTIDINE [Suspect]
     Active Substance: FAMOTIDINE

REACTIONS (3)
  - Pyrexia [Recovering/Resolving]
  - Pruritus [Unknown]
  - Erythema [Recovering/Resolving]

NARRATIVE: CASE EVENT DATE: 20170916
